FAERS Safety Report 4621213-X (Version None)
Quarter: 2005Q1

REPORT INFORMATION
  Report Type: 
  Country: None (occurrence: None)
  Receive Date: 20050329
  Receipt Date: 20040220
  Transmission Date: 20050727
  Serious: Yes (Hospitalization)
  Sender: FDA-Public Use
  Company Number: FR-RB-530-2004

PATIENT
  Age: 26 Year
  Sex: Male
  Weight: 64 kg

DRUGS (6)
  1. BUPRENORPHINE HCL [Suspect]
     Indication: DRUG DEPENDENCE
     Dosage: SUBUTEX (BUPRENORPHINE HCL) SUBLINGUAL TABLETS 2MG QD SUBLINGUAL DISCONTINUED FOR DRUG DEPENDENCE.
     Route: 060
  2. BUPRENORPHINE HCL [Suspect]
     Route: 060
     Dates: start: 20040205, end: 20040209
  3. BUPRENORPHINE HCL [Suspect]
     Route: 060
     Dates: start: 20040210
  4. MIRTAZAPINE [Concomitant]
     Indication: DEPRESSION
     Dosage: UNKNOWN
     Route: 065
  5. HYDROXYZINE HYDROCHLORIDE [Concomitant]
     Indication: ANXIETY
     Route: 065
     Dates: start: 20040201, end: 20040211
  6. CYAMEMAZINE [Concomitant]
     Indication: ANXIETY
     Route: 065
     Dates: start: 20040204, end: 20040207

REACTIONS (1)
  - PANCREATITIS [None]
